FAERS Safety Report 7911385-3 (Version None)
Quarter: 2011Q4

REPORT INFORMATION
  Report Type: 
  Country: None (occurrence: None)
  Receive Date: 20111114
  Receipt Date: 20111108
  Transmission Date: 20120403
  Serious: Yes (Death)
  Sender: FDA-Public Use
  Company Number: US-ASTELLAS-2011US007017

PATIENT

DRUGS (3)
  1. MORPHINE [Suspect]
     Indication: PRODUCT USED FOR UNKNOWN INDICATION
     Dosage: UNK
     Route: 065
  2. UNSPECIFIED MEDICATIONS [Concomitant]
     Indication: PRODUCT USED FOR UNKNOWN INDICATION
     Dosage: UNK
     Route: 065
  3. VESICARE [Suspect]
     Indication: BACK DISORDER
     Dosage: UNK
     Route: 048
     Dates: end: 20110903

REACTIONS (2)
  - ACCIDENTAL OVERDOSE [None]
  - OFF LABEL USE [None]
